FAERS Safety Report 9198117 (Version 2)
Quarter: 2013Q3

REPORT INFORMATION
  Report Type: Spontaneous
  Country: CA (occurrence: CA)
  Receive Date: 20130329
  Receipt Date: 20130812
  Transmission Date: 20140515
  Serious: Yes (Other)
  Sender: FDA-Public Use
  Company Number: CA-ELI_LILLY_AND_COMPANY-CA201303006479

PATIENT
  Age: 20 Year
  Sex: Male

DRUGS (2)
  1. CYMBALTA [Suspect]
  2. DESVENLAFAXINE SUCCINATE [Suspect]

REACTIONS (3)
  - Convulsion [Not Recovered/Not Resolved]
  - Cyst [Not Recovered/Not Resolved]
  - Lichen planus [Not Recovered/Not Resolved]
